FAERS Safety Report 7044559-7 (Version None)
Quarter: 2010Q4

REPORT INFORMATION
  Report Type: 
  Country: None (occurrence: None)
  Receive Date: 20101014
  Receipt Date: 20101006
  Transmission Date: 20110411
  Serious: Yes (Hospitalization)
  Sender: FDA-Public Use
  Company Number: NL-NOVOPROD-316144

PATIENT
  Age: 54 Year
  Sex: Female
  Weight: 95 kg

DRUGS (2)
  1. VICTOZA [Suspect]
     Indication: TYPE 2 DIABETES MELLITUS
     Dosage: 1.2 MG, QD
     Dates: start: 20100820
  2. METFORMIN [Concomitant]
     Dosage: 500 MG, UNK

REACTIONS (1)
  - ARRHYTHMIA [None]
